FAERS Safety Report 5585415-0 (Version None)
Quarter: 2008Q1

REPORT INFORMATION
  Report Type: 
  Country: None (occurrence: None)
  Receive Date: 20080109
  Receipt Date: 20080108
  Transmission Date: 20080703
  Serious: Yes (Other)
  Sender: FDA-Public Use
  Company Number: A0701438A

PATIENT
  Sex: Female

DRUGS (2)
  1. ALLI [Suspect]
     Dates: start: 20071101
  2. NO CONCURRENT MEDICATION [Concomitant]

REACTIONS (9)
  - ANAL HAEMORRHAGE [None]
  - ANORECTAL DISCOMFORT [None]
  - CHANGE OF BOWEL HABIT [None]
  - DIARRHOEA [None]
  - FREQUENT BOWEL MOVEMENTS [None]
  - HAEMATOCHEZIA [None]
  - PHARMACEUTICAL PRODUCT COMPLAINT [None]
  - RECTAL DISCHARGE [None]
  - RECTAL HAEMORRHAGE [None]
